FAERS Safety Report 6518812-7 (Version None)
Quarter: 2009Q4

REPORT INFORMATION
  Report Type: 
  Country: None (occurrence: None)
  Receive Date: 20091228
  Receipt Date: 20091215
  Transmission Date: 20100525
  Serious: Yes (Hospitalization, Other)
  Sender: FDA-Public Use
  Company Number: TW-JNJFOC-20091205894

PATIENT
  Age: 39 Year
  Sex: Female

DRUGS (4)
  1. RISPERIDONE [Suspect]
     Indication: SCHIZOPHRENIA
     Route: 048
  2. RISPERIDONE [Suspect]
     Route: 048
  3. CALMDAY [Suspect]
     Indication: SCHIZOPHRENIA
     Route: 065
  4. PRIMPERAN TAB [Suspect]
     Indication: FLATULENCE
     Route: 065

REACTIONS (7)
  - APPENDICEAL ABSCESS [None]
  - APPENDICITIS PERFORATED [None]
  - EXTRAPYRAMIDAL DISORDER [None]
  - FLATULENCE [None]
  - MYOCLONUS [None]
  - PYREXIA [None]
  - TREMOR [None]
